FAERS Safety Report 8330181-9 (Version None)
Quarter: 2012Q2

REPORT INFORMATION
  Report Type: 
  Country: None (occurrence: None)
  Receive Date: 20120502
  Receipt Date: 20120426
  Transmission Date: 20120825
  Serious: Yes (Hospitalization)
  Sender: FDA-Public Use
  Company Number: JP-SP-2012-04121

PATIENT
  Age: 74 Year
  Sex: Male
  Weight: 70.7 kg

DRUGS (2)
  1. HALTHROW OD [Concomitant]
     Indication: BENIGN PROSTATIC HYPERPLASIA
     Dosage: TABLET
     Route: 048
     Dates: start: 20120106
  2. IMMUCYST [Suspect]
     Indication: BLADDER CANCER
     Route: 043
     Dates: start: 20120309, end: 20120406

REACTIONS (3)
  - DYSPNOEA EXERTIONAL [None]
  - EOSINOPHILIC PNEUMONIA [None]
  - PYREXIA [None]
